FAERS Safety Report 19731274 (Version 2)
Quarter: 2021Q3

REPORT INFORMATION
  Report Type: Spontaneous
  Country: FR (occurrence: FR)
  Receive Date: 20210821
  Receipt Date: 20210821
  Transmission Date: 20211014
  Serious: No
  Sender: FDA-Public Use
  Company Number: FR-JAZZ-2020-FR-012226

PATIENT

DRUGS (3)
  1. FRESH FROZEN PLASMA [Concomitant]
     Active Substance: HUMAN PLASMA
     Indication: DISSEMINATED INTRAVASCULAR COAGULATION
  2. VYXEOS [Suspect]
     Active Substance: CYTARABINE\DAUNORUBICIN
     Indication: DISSEMINATED INTRAVASCULAR COAGULATION
     Dosage: UNKNOWN DOSE
  3. FIBRINOGEN [Concomitant]
     Active Substance: FIBRINOGEN HUMAN
     Indication: DISSEMINATED INTRAVASCULAR COAGULATION

REACTIONS (1)
  - Off label use [Unknown]
